FAERS Safety Report 6753908 (Version 5)
Quarter: 2014Q2

REPORT INFORMATION
  Report Type: Spontaneous
  Country: CA (occurrence: CA)
  Receive Date: 20080911
  Receipt Date: 20140507
  Transmission Date: 20141212
  Serious: Yes (Hospitalization, Other)
  Sender: FDA-Public Use
  Company Number: CA-MERCK-0809CAN00002

PATIENT
  Age: 44 Year
  Sex: Male

DRUGS (15)
  1. ISENTRESS [Suspect]
     Dosage: 400 MG, BID
     Route: 048
     Dates: start: 20070626
  2. RITONAVIR [Suspect]
     Indication: HIV INFECTION
     Route: 065
  3. CITALOPRAM [Suspect]
     Indication: DEPRESSION
     Route: 065
  4. ATAZANAVIR SULFATE [Suspect]
     Indication: HIV INFECTION
     Route: 065
  5. BUPROPION HYDROCHLORIDE [Suspect]
     Indication: DEPRESSION
     Route: 065
     Dates: start: 20070730
  6. BUPROPION HYDROCHLORIDE [Suspect]
     Dates: end: 20070729
  7. CLONAZEPAM [Suspect]
     Indication: DEPRESSION
     Route: 065
     Dates: start: 20070730
  8. CLONAZEPAM [Suspect]
     Dates: end: 20070729
  9. QUETIAPINE FUMARATE [Suspect]
     Indication: DEPRESSION
     Route: 065
     Dates: end: 20070730
  10. RISPERIDONE [Interacting]
     Indication: DEPRESSION
     Route: 065
     Dates: start: 20070730
  11. RISPERIDONE [Interacting]
     Dosage: UNK
     Route: 065
     Dates: end: 20070729
  12. SUSTIVA [Suspect]
     Indication: HIV INFECTION
     Route: 065
     Dates: start: 20060602, end: 20070522
  13. TENOFOVIR [Concomitant]
     Indication: HIV INFECTION
     Route: 065
  14. ENFUVIRTIDE [Concomitant]
     Indication: HIV INFECTION
     Route: 065
     Dates: end: 20070626
  15. EMTRIVA [Concomitant]
     Indication: HIV INFECTION
     Route: 065

REACTIONS (11)
  - Psychotic disorder [Recovered/Resolved]
  - Suicidal ideation [Recovered/Resolved]
  - Depression suicidal [Recovered/Resolved]
  - Anxiety [Recovered/Resolved]
  - Drug interaction [Unknown]
  - Psychomotor skills impaired [Recovered/Resolved]
  - Paranoia [Recovered/Resolved]
  - Depressive symptom [Recovered/Resolved]
  - Tearfulness [Recovered/Resolved]
  - Depression [Recovered/Resolved]
  - Psychiatric decompensation [Recovered/Resolved]
